FAERS Safety Report 6530340-1 (Version None)
Quarter: 2010Q1

REPORT INFORMATION
  Report Type: 
  Country: None (occurrence: None)
  Receive Date: 20100107
  Receipt Date: 20091208
  Transmission Date: 20100710
  Serious: Yes (Other)
  Sender: FDA-Public Use
  Company Number: PHHY2009BR54493

PATIENT
  Sex: Female

DRUGS (6)
  1. DIOVAN AMLO FIX [Suspect]
     Indication: HYPERTENSION
     Dosage: 80/5 MG, 1 TABLET DAILY
     Route: 048
     Dates: start: 20070101
  2. DIOVAN AMLO FIX [Suspect]
     Dosage: 160/5 MG
     Route: 048
     Dates: start: 20091208
  3. GLUCOVANCE [Concomitant]
     Indication: TYPE 2 DIABETES MELLITUS
     Dosage: 500 MG, 2 TABLETS DAILY
     Route: 048
  4. OLCADIL [Concomitant]
     Indication: ANXIETY
     Dosage: 2 MG, HALF TABLET DAILY
  5. FRONTAL [Concomitant]
     Indication: SLEEP DISORDER
     Dosage: 1 MG, 1 TABLET DAILY
     Route: 048
     Dates: start: 20080101
  6. TICLID [Concomitant]
     Indication: ISCHAEMIA
     Dosage: 250 MG, 1 TABLET DAILY
     Route: 048

REACTIONS (3)
  - HELICOBACTER GASTRITIS [None]
  - HYPERTENSION [None]
  - SKIN DISORDER [None]
